FAERS Safety Report 14290572 (Version 2)
Quarter: 2018Q1

REPORT INFORMATION
  Report Type: Spontaneous
  Country: None (occurrence: SE)
  Receive Date: 20171215
  Receipt Date: 20180305
  Transmission Date: 20180509
  Serious: Yes (Death, Hospitalization, Other)
  Sender: FDA-Public Use
  Company Number: SE-BIOGEN-2008BI021064

PATIENT
  Age: 38 Year
  Sex: Female

DRUGS (1)
  1. TYSABRI [Suspect]
     Active Substance: NATALIZUMAB
     Indication: MULTIPLE SCLEROSIS
     Dosage: INFUSED OVER ONE HOUR
     Route: 042
     Dates: start: 200711, end: 2008

REACTIONS (3)
  - Respiratory failure [Fatal]
  - Pulmonary vascular disorder [Fatal]
  - Central nervous system inflammation [Fatal]

NARRATIVE: CASE EVENT DATE: 20080101
